FAERS Safety Report 4364477-2 (Version None)
Quarter: 2004Q2

REPORT INFORMATION
  Report Type: 
  Country: None (occurrence: None)
  Receive Date: 20040525
  Receipt Date: 20040519
  Transmission Date: 20050107
  Serious: Yes (Hospitalization)
  Sender: FDA-Public Use
  Company Number: FR-GLAXOSMITHKLINE-B0333386A

PATIENT
  Age: 53 Year
  Sex: Male
  Weight: 71 kg

DRUGS (8)
  1. FORTUM [Suspect]
     Dosage: 1G THREE TIMES PER DAY
     Route: 042
     Dates: start: 20030707, end: 20030720
  2. ARACYTINE [Suspect]
     Dosage: 5.6G PER DAY
     Route: 042
     Dates: start: 20030702, end: 20030705
  3. NOVANTRONE [Suspect]
     Dosage: 22MG PER DAY
     Route: 042
     Dates: start: 20030706, end: 20030707
  4. VANCOMYCIN [Suspect]
     Dosage: 500MG FOUR TIMES PER DAY
     Route: 042
     Dates: start: 20030707, end: 20030803
  5. AMIKLIN [Concomitant]
     Dosage: 500MG TWICE PER DAY
     Route: 065
     Dates: start: 20030710, end: 20030718
  6. PRIMAXIN [Concomitant]
     Dosage: 500MG FOUR TIMES PER DAY
     Route: 065
     Dates: start: 20030720, end: 20030803
  7. OFLOCET [Concomitant]
     Dosage: 200MG TWICE PER DAY
     Route: 065
     Dates: start: 20030722, end: 20030724
  8. FUNGIZONE [Concomitant]
     Dosage: 30MG PER DAY
     Route: 065
     Dates: start: 20030722, end: 20030803

REACTIONS (4)
  - CHEST X-RAY ABNORMAL [None]
  - HYPOTENSION [None]
  - PULMONARY ALVEOLAR HAEMORRHAGE [None]
  - PYREXIA [None]
